FAERS Safety Report 8082734-3 (Version None)
Quarter: 2012Q1

REPORT INFORMATION
  Report Type: 
  Country: None (occurrence: None)
  Receive Date: 20120127
  Receipt Date: 20110208
  Transmission Date: 20120608
  Serious: Yes (Hospitalization)
  Sender: FDA-Public Use
  Company Number: US-ABBOTT-11P-163-0703783-00

PATIENT
  Sex: Female
  Weight: 48.578 kg

DRUGS (4)
  1. HUMIRA [Suspect]
     Indication: CROHN'S DISEASE
     Route: 058
     Dates: start: 20081201, end: 20110201
  2. PLAVIX [Concomitant]
     Indication: PRODUCT USED FOR UNKNOWN INDICATION
  3. PROPINE [Concomitant]
     Indication: GLAUCOMA
     Route: 047
  4. ASATOL [Concomitant]
     Indication: CROHN'S DISEASE

REACTIONS (2)
  - VASODILATATION [None]
  - ABSCESS LIMB [None]
